FAERS Safety Report 10098361 (Version 2)
Quarter: 2014Q2

REPORT INFORMATION
  Report Type: Spontaneous
  Country: US (occurrence: US)
  Receive Date: 20140423
  Receipt Date: 20140526
  Transmission Date: 20141212
  Serious: No
  Sender: FDA-Public Use
  Company Number: US-JNJFOC-20140411657

PATIENT
  Age: 52 Year
  Sex: Male
  Weight: 84.37 kg

DRUGS (6)
  1. INVEGA SUSTENNA [Suspect]
     Indication: SCHIZOPHRENIA, PARANOID TYPE
     Route: 030
  2. INVEGA [Concomitant]
     Indication: SCHIZOPHRENIA, PARANOID TYPE
     Route: 048
  3. KEPPRA [Concomitant]
     Indication: CONVULSION
     Route: 048
  4. KLONOPIN [Concomitant]
     Indication: ANXIETY
     Route: 048
  5. PAXIL [Concomitant]
     Indication: DEPRESSION
     Route: 048
  6. PHENYTOIN [Concomitant]
     Indication: CONVULSION
     Route: 048

REACTIONS (2)
  - Drug dose omission [Unknown]
  - Product packaging issue [Unknown]
